FAERS Safety Report 7235379-9 (Version None)
Quarter: 2011Q1

REPORT INFORMATION
  Report Type: 
  Country: None (occurrence: None)
  Receive Date: 20110120
  Receipt Date: 20110112
  Transmission Date: 20110831
  Serious: Yes (Hospitalization, Other)
  Sender: FDA-Public Use
  Company Number: FR-PFIZER INC-2010148877

PATIENT
  Age: 47 Year
  Sex: Female
  Weight: 70 kg

DRUGS (10)
  1. INIPOMP [Concomitant]
     Dosage: UNKNOWN
     Dates: end: 20101101
  2. INIPOMP [Concomitant]
     Dosage: 20 MG, 1X/DAY
     Route: 048
     Dates: start: 20101101
  3. COVERSYL [Concomitant]
     Dosage: UNKNOWN
  4. EFFERALGAN CODEINE [Concomitant]
     Dosage: UNKNOWN
  5. ACUPAN [Concomitant]
     Dosage: 3 INJECTIONS DAILY
  6. SALAZOPYRINE [Suspect]
     Dosage: 500 MG, 4 TABLETS PER DAY
     Route: 048
     Dates: start: 20101101, end: 20101105
  7. CORTANCYL [Concomitant]
     Dosage: UNK
     Dates: start: 20100701, end: 20101105
  8. EFFEXOR [Concomitant]
     Dosage: 37.5 MG, 1X/DAY
     Route: 048
     Dates: start: 20101101
  9. EFFEXOR [Concomitant]
     Dosage: 37.5 MG STRENGTH; DOSE UNKNOWN
     Dates: end: 20101101
  10. SALAZOPYRINE [Suspect]
     Indication: ANKYLOSING SPONDYLITIS
     Dosage: 500 MG, 2 TABLETS PER DAY
     Route: 048
     Dates: start: 20101001, end: 20101101

REACTIONS (3)
  - NAUSEA [None]
  - VOMITING [None]
  - MENINGITIS ASEPTIC [None]
